FAERS Safety Report 9231149 (Version 1)
Quarter: 2013Q2

REPORT INFORMATION
  Report Type: Spontaneous
  Country: US (occurrence: US)
  Receive Date: 20130415
  Receipt Date: 20130415
  Transmission Date: 20140414
  Serious: No
  Sender: FDA-Public Use
  Company Number: US-009507513-2012SP003711

PATIENT
  Age: 12 Year
  Sex: Female

DRUGS (2)
  1. LOTRIMIN AF RINGWORM CREAM [Suspect]
     Indication: RASH
     Dosage: UNK, UNK, BID
     Route: 061
     Dates: start: 20111216, end: 20111223
  2. LOTRIMIN AF RINGWORM CREAM [Suspect]
     Indication: PRURITUS

REACTIONS (1)
  - No therapeutic response [Recovered/Resolved]
